FAERS Safety Report 9210391 (Version 2)
Quarter: 2013Q2

REPORT INFORMATION
  Report Type: Spontaneous
  Country: US (occurrence: US)
  Receive Date: 20130404
  Receipt Date: 20130606
  Transmission Date: 20140414
  Serious: Yes (Other)
  Sender: FDA-Public Use
  Company Number: US-TEVA-395400USA

PATIENT
  Sex: Female

DRUGS (1)
  1. PROVIGIL [Suspect]
     Dosage: 1/2 TABLET
     Route: 048

REACTIONS (5)
  - Oxygen supplementation [Unknown]
  - Drug withdrawal syndrome [Unknown]
  - Malaise [Unknown]
  - Fear [Unknown]
  - Underdose [Unknown]
